FAERS Safety Report 20926638 (Version 1)
Quarter: 2022Q2

REPORT INFORMATION
  Report Type: Spontaneous
  Country: US (occurrence: None)
  Receive Date: 20220607
  Receipt Date: 20220607
  Transmission Date: 20220721
  Serious: Yes (Other)
  Sender: FDA-Public Use
  Company Number: None

PATIENT
  Age: 46 Year
  Sex: Male
  Weight: 90 kg

DRUGS (9)
  1. PAXLOVID [Suspect]
     Active Substance: NIRMATRELVIR\RITONAVIR
     Indication: COVID-19
     Dosage: OTHER QUANTITY : 3 CAPSULE(S);?FREQUENCY : TWICE A DAY;?
     Route: 048
     Dates: start: 20220602, end: 20220603
  2. ATENOLOL [Concomitant]
     Active Substance: ATENOLOL
  3. CLARITIN [Concomitant]
     Active Substance: LORATADINE
  4. FLOVENT [Concomitant]
     Active Substance: FLUTICASONE PROPIONATE
  5. FISH OIL [Concomitant]
     Active Substance: FISH OIL
  6. ALBUTEROL [Concomitant]
     Active Substance: ALBUTEROL
  7. VITAMINS [Concomitant]
     Active Substance: VITAMINS
  8. MAGNESIUM [Concomitant]
     Active Substance: MAGNESIUM
  9. OSCAL [Concomitant]
     Active Substance: CALCIUM CARBONATE

REACTIONS (5)
  - Heart rate decreased [None]
  - Tachycardia [None]
  - Dizziness postural [None]
  - Chest pain [None]
  - Hypertension [None]

NARRATIVE: CASE EVENT DATE: 20220603
